FAERS Safety Report 4913058-8 (Version None)
Quarter: 2006Q1

REPORT INFORMATION
  Report Type: 
  Country: None (occurrence: None)
  Receive Date: 20060210
  Receipt Date: 20060131
  Transmission Date: 20060701
  Serious: Yes (Death)
  Sender: FDA-Public Use
  Company Number: HQWYE611701FEB06

PATIENT
  Age: 22 Year
  Sex: Male

DRUGS (2)
  1. EFFEXOR [Suspect]
     Dosage: OVERDOSE AMOUNT UNKNOWN
     Dates: start: 20010101, end: 20010101
  2. UNSPECIFIED ANTIDEPRESSANT (UNSPECIFIED ANTIDEPRESSANT, UNSPEC) [Suspect]

REACTIONS (3)
  - COMPLETED SUICIDE [None]
  - MEDICATION ERROR [None]
  - OVERDOSE [None]
